FAERS Safety Report 4822428-8 (Version None)
Quarter: 2005Q4

REPORT INFORMATION
  Report Type: 
  Country: None (occurrence: None)
  Receive Date: 20051103
  Receipt Date: 20051103
  Transmission Date: 20060501
  Serious: Yes (Hospitalization)
  Sender: FDA-Public Use
  Company Number: None

PATIENT
  Age: 58 Year
  Sex: Male

DRUGS (10)
  1. VYTORIN [Suspect]
     Indication: HYPERCHOLESTEROLAEMIA
     Dosage: 10/20MG DAILY PO
     Route: 048
     Dates: start: 20041101, end: 20050201
  2. EPLERENONE [Suspect]
     Indication: ACUTE MYOCARDIAL INFARCTION
     Dosage: 25 MG ONCE PO
     Route: 048
     Dates: start: 20041101, end: 20050201
  3. FUROSEMIDE [Concomitant]
  4. LANOXIN [Concomitant]
  5. PANTOPRAZOLE [Concomitant]
  6. ASPIRIN [Concomitant]
  7. RISEDRONATE [Concomitant]
  8. WARFARIN [Concomitant]
  9. LISINOPRIL [Concomitant]
  10. METOPROLOL [Concomitant]

REACTIONS (8)
  - ABDOMINAL DISCOMFORT [None]
  - ABDOMINAL DISTENSION [None]
  - BILE DUCT STONE [None]
  - CHOLELITHIASIS [None]
  - HEPATIC ENZYME INCREASED [None]
  - NAUSEA [None]
  - OBSTRUCTION [None]
  - VOMITING [None]
